FAERS Safety Report 15655232 (Version 1)
Quarter: 2018Q4

REPORT INFORMATION
  Report Type: Spontaneous
  Country: US (occurrence: US)
  Receive Date: 20181126
  Receipt Date: 20181126
  Transmission Date: 20190205
  Serious: No
  Sender: FDA-Public Use
  Company Number: US-BAYER-2018-211022

PATIENT
  Age: 71 Year
  Sex: Female

DRUGS (1)
  1. CLIMARA [Suspect]
     Active Substance: ESTRADIOL
     Dosage: 0.025 MG, CONT
     Route: 062

REACTIONS (6)
  - Weight increased [Not Recovered/Not Resolved]
  - Product quality issue [None]
  - Product adhesion issue [None]
  - Drug ineffective [None]
  - Migraine [Not Recovered/Not Resolved]
  - Hot flush [Not Recovered/Not Resolved]
